FAERS Safety Report 18569289 (Version 2)
Quarter: 2021Q3

REPORT INFORMATION
  Report Type: Spontaneous
  Country: US (occurrence: US)
  Receive Date: 20201202
  Receipt Date: 20210903
  Transmission Date: 20211014
  Serious: No
  Sender: FDA-Public Use
  Company Number: US-DECIPHERA PHARMACEUTICALS LLC-2020-US-000409

PATIENT
  Age: 73 Year
  Sex: Female

DRUGS (1)
  1. QINLOCK [Suspect]
     Active Substance: RIPRETINIB
     Indication: GASTROINTESTINAL STROMAL TUMOUR
     Dosage: 50 MILLIGRAM, QD
     Route: 048
     Dates: start: 20200812, end: 20200916

REACTIONS (4)
  - Product administration interrupted [Unknown]
  - Weight gain poor [Unknown]
  - Asthenia [Unknown]
  - Underdose [Unknown]

NARRATIVE: CASE EVENT DATE: 20200917
